FAERS Safety Report 8537559 (Version 3)
Quarter: 2013Q1

REPORT INFORMATION
  Report Type: Spontaneous
  Country: US (occurrence: None)
  Receive Date: 20120424
  Receipt Date: 20120719
  Transmission Date: 20140127
  Serious: Yes (Other)
  Sender: FDA-Public Use
  Company Number: None

PATIENT
  Age: 81 Year
  Sex: Male

DRUGS (1)
  1. BENICAR [Suspect]
     Indication: HYPERTENSION
     Dosage: (40 MG),PER ORAL
     Route: 048
     Dates: start: 201008, end: 20100826

REACTIONS (7)
  - Clostridial infection [None]
  - Helicobacter infection [None]
  - Hypotension [None]
  - Vomiting [None]
  - Weight decreased [None]
  - Nausea [None]
  - Drug interaction [None]
